FAERS Safety Report 19856117 (Version 1)
Quarter: 2021Q3

REPORT INFORMATION
  Report Type: Spontaneous
  Country: DE (occurrence: DE)
  Receive Date: 20210920
  Receipt Date: 20210920
  Transmission Date: 20211014
  Serious: Yes (Hospitalization)
  Sender: FDA-Public Use
  Company Number: DE-TEVA-2021-DE-1953102

PATIENT
  Age: 57 Year
  Sex: Male
  Weight: 70 kg

DRUGS (15)
  1. CISPLATIN. [Suspect]
     Active Substance: CISPLATIN
     Dosage: SCHEME
  2. PREDNISOLON [Concomitant]
     Active Substance: PREDNISOLONE
     Dosage: 5 MILLIGRAM DAILY;   1?0?0?0
  3. HYDROMORPHON [Concomitant]
     Active Substance: HYDROMORPHONE
     Dosage: 1.3 MG, AS NEEDED
  4. NALOXONE W/OXYCODONE [Concomitant]
     Active Substance: NALOXONE HYDROCHLORIDE\OXYCODONE HYDROCHLORIDE
     Dosage: UNIT DOSE :1 DOSAGE FORMS ,5|10 MG, 1?0?2?0
  5. NATRIUMPICOSULFAT [Concomitant]
     Active Substance: SODIUM PICOSULFATE
     Dosage: REQUIREMENT
  6. PANTOPRAZOL [Concomitant]
     Active Substance: PANTOPRAZOLE SODIUM
     Dosage: 20 MILLIGRAM DAILY;   1?0?0?0
  7. DENOSUMAB [Concomitant]
     Active Substance: DENOSUMAB
     Dosage: 120 MG, SCHEME
  8. GEMCITABINE. [Suspect]
     Active Substance: GEMCITABINE
     Dosage: SCHEME
  9. PARACETAMOL [Concomitant]
     Active Substance: ACETAMINOPHEN
     Dosage: 1 G, AS REQUIRED
  10. MAGNESIUM [Concomitant]
     Active Substance: MAGNESIUM
     Dosage: 2 DOSAGE FORMS DAILY; 1?0?1?0
  11. MACROGOL/KALIUMCHLORID/NATRIUMCARBONAT/NATRIUMCHLORID [Concomitant]
     Dosage: 2 DOSAGE FORMS DAILY; 1?0?1?0
  12. METAMIZOL [Concomitant]
     Active Substance: METAMIZOLE SODIUM
     Dosage: 8 DOSAGE FORMS DAILY; 500 MG, 2?2?2?2
  13. PREGABALIN. [Concomitant]
     Active Substance: PREGABALIN
     Dosage: 200 MILLIGRAM DAILY; 1?0?1?0
  14. GRANISETRON [Concomitant]
     Active Substance: GRANISETRON
     Dosage: 2 MILLIGRAM DAILY;   1?0?0?0
  15. ENOXAPARIN [Concomitant]
     Active Substance: ENOXAPARIN
     Dosage: .4 IU (INTERNATIONAL UNIT) DAILY;   1?0?0?0

REACTIONS (5)
  - Pyrexia [Recovering/Resolving]
  - General physical health deterioration [Recovering/Resolving]
  - Condition aggravated [Recovering/Resolving]
  - Anaemia [Recovering/Resolving]
  - Systemic infection [Recovering/Resolving]
